FAERS Safety Report 4301195-0 (Version None)
Quarter: 2004Q1

REPORT INFORMATION
  Report Type: 
  Country: None (occurrence: None)
  Receive Date: 20040218
  Receipt Date: 20040115
  Transmission Date: 20041129
  Serious: No
  Sender: FDA-Public Use
  Company Number: 2004-01-1109

PATIENT
  Sex: Female
  Weight: 136.0791 kg

DRUGS (2)
  1. PEG-INTRON [Suspect]
     Dosage: 150 MCG QWK
     Route: 058
     Dates: start: 20030914
  2. REBETOL [Suspect]
     Dosage: 1400 MG QD
     Route: 048
     Dates: start: 20030914

REACTIONS (3)
  - NEUTROPHIL COUNT INCREASED [None]
  - PETECHIAE [None]
  - RASH PRURITIC [None]
